FAERS Safety Report 17544079 (Version 1)
Quarter: 2020Q1

REPORT INFORMATION
  Report Type: Spontaneous
  Country: MX (occurrence: MX)
  Receive Date: 20200316
  Receipt Date: 20200316
  Transmission Date: 20200409
  Serious: Yes (Other)
  Sender: FDA-Public Use
  Company Number: MX-ALVOGEN-2020-ALVOGEN-107886

PATIENT
  Age: 79 Year
  Sex: Male
  Weight: 72 kg

DRUGS (8)
  1. CORDARONE [Concomitant]
     Active Substance: AMIODARONE HYDROCHLORIDE
     Indication: ARRHYTHMIA
     Dosage: 1 TABLET FROM MONDAY TO FRIDAY ORALLY
     Route: 048
     Dates: start: 202001
  2. LIPITOR [Concomitant]
     Active Substance: ATORVASTATIN CALCIUM
     Indication: BLOOD CHOLESTEROL ABNORMAL
     Route: 048
  3. LEVOFLOXACIN. [Concomitant]
     Active Substance: LEVOFLOXACIN
     Indication: PRODUCT USED FOR UNKNOWN INDICATION
  4. CITICOLINE [Concomitant]
     Active Substance: CITICOLINE
     Indication: NEURONAL NEUROPATHY
     Route: 048
     Dates: start: 2019
  5. NORVASC [Concomitant]
     Active Substance: AMLODIPINE BESYLATE
     Indication: HYPERTENSION
     Dosage: 0.5 TABLET IN THE MORNING AND 0.5 TANLETA AT NIGHT
     Route: 048
  6. ENTRESTO [Concomitant]
     Active Substance: SACUBITRIL\VALSARTAN
     Indication: PRODUCT USED FOR UNKNOWN INDICATION
     Dosage: 50 MG 1 TABLET AT NIGHT AND 1 TABLET IN THE MORNING
     Route: 048
     Dates: start: 20200124
  7. ATENOLOL. [Suspect]
     Active Substance: ATENOLOL
     Indication: HYPERTENSION
     Dosage: 0.5 DOSES IN THE MORNING AND 0.5 DOSES AT NIGHT ORALLY
     Route: 048
  8. ELICUIS [Concomitant]
     Active Substance: APIXABAN
     Indication: ANTICOAGULANT THERAPY
     Dosage: 1 TABLET IN THE MORNING AND 1 AT NIGHT
     Route: 048
     Dates: start: 202001

REACTIONS (3)
  - Cardiac failure [Unknown]
  - Arrhythmia [Unknown]
  - Atrial fibrillation [Recovering/Resolving]
